FAERS Safety Report 8481680-0 (Version None)
Quarter: 2012Q2

REPORT INFORMATION
  Report Type: 
  Country: None (occurrence: None)
  Receive Date: 20120402
  Receipt Date: 20110524
  Transmission Date: 20120825
  Serious: Yes (Hospitalization)
  Sender: FDA-Public Use
  Company Number: PHHY2011US46062

PATIENT
  Sex: Male

DRUGS (2)
  1. EXFORGE HCT [Suspect]
  2. VICTOZA [Suspect]

REACTIONS (1)
  - RENAL FAILURE [None]
